FAERS Safety Report 21321403 (Version 1)
Quarter: 2022Q3

REPORT INFORMATION
  Report Type: Spontaneous
  Country: US (occurrence: US)
  Receive Date: 20220912
  Receipt Date: 20220912
  Transmission Date: 20221027
  Serious: No
  Sender: FDA-Public Use
  Company Number: US-GLAXOSMITHKLINE-USCH2022AMR032595

PATIENT
  Sex: Female
  Weight: 91.156 kg

DRUGS (6)
  1. IBUPROFEN [Suspect]
     Active Substance: IBUPROFEN
     Indication: Infusion site pain
     Dosage: UNK
  2. TYLENOL [Suspect]
     Active Substance: ACETAMINOPHEN
     Indication: Infusion site pain
     Dosage: UNK
  3. REMODULIN [Concomitant]
     Active Substance: TREPROSTINIL
     Indication: Pulmonary arterial hypertension
     Dosage: 0.02 UNK, UG/KG
     Route: 058
     Dates: start: 20211209
  4. REMODULIN [Concomitant]
     Active Substance: TREPROSTINIL
     Dosage: UNK
     Route: 058
  5. TADALAFIL [Concomitant]
     Active Substance: TADALAFIL
     Indication: Product used for unknown indication
     Dosage: UNK
  6. OPSUMIT [Concomitant]
     Active Substance: MACITENTAN
     Indication: Product used for unknown indication
     Dosage: UNK

REACTIONS (1)
  - Drug ineffective [Unknown]
